FAERS Safety Report 7616708-0 (Version None)
Quarter: 2011Q3

REPORT INFORMATION
  Report Type: 
  Country: None (occurrence: None)
  Receive Date: 20110718
  Receipt Date: 20110711
  Transmission Date: 20111222
  Serious: Yes (Life-Threatening, Hospitalization)
  Sender: FDA-Public Use
  Company Number: FR-BRISTOL-MYERS SQUIBB COMPANY-15895329

PATIENT
  Age: 78 Year
  Sex: Female

DRUGS (5)
  1. ASPIRIN [Concomitant]
  2. TAXOL [Suspect]
     Indication: BREAST CANCER
     Dosage: DAY 3,6TH INF
     Route: 042
     Dates: start: 20110420, end: 20110531
  3. SECTRAL [Concomitant]
  4. AVASTIN [Suspect]
     Indication: BREAST CANCER
     Dosage: DAY 3,6TH INF
     Route: 042
     Dates: start: 20110420, end: 20110531
  5. ATORVASTATIN CALCIUM [Concomitant]

REACTIONS (2)
  - ACUTE PULMONARY OEDEMA [None]
  - CONGESTIVE CARDIOMYOPATHY [None]
